FAERS Safety Report 8489008-7 (Version None)
Quarter: 2012Q3

REPORT INFORMATION
  Report Type: 
  Country: None (occurrence: None)
  Receive Date: 20120705
  Receipt Date: 20120702
  Transmission Date: 20120928
  Serious: No
  Sender: FDA-Public Use
  Company Number: US-PFIZER INC-2012158654

PATIENT
  Sex: Female
  Weight: 68 kg

DRUGS (7)
  1. BUSPAR [Concomitant]
     Indication: ANXIETY
     Dosage: UNK
  2. ZOLOFT [Concomitant]
     Indication: DEPRESSION
     Dosage: UNK
  3. PERCOCET [Concomitant]
     Indication: PAIN
     Dosage: UNK
  4. VALIUM [Concomitant]
     Indication: ANXIETY
     Dosage: UNK
  5. LYRICA [Suspect]
     Dosage: UNK
     Route: 048
     Dates: start: 20120627
  6. LYRICA [Suspect]
     Indication: NERVE INJURY
     Dosage: 300 MG, 1X/DAY
     Route: 048
     Dates: end: 20120201
  7. CELEXA [Concomitant]
     Indication: DEPRESSION
     Dosage: UNK

REACTIONS (6)
  - FORMICATION [None]
  - INSOMNIA [None]
  - SKIN BURNING SENSATION [None]
  - MALAISE [None]
  - NERVOUS SYSTEM DISORDER [None]
  - PAIN [None]
